FAERS Safety Report 17037333 (Version 5)
Quarter: 2019Q4

REPORT INFORMATION
  Report Type: Spontaneous
  Country: US (occurrence: US)
  Receive Date: 20191115
  Receipt Date: 20191227
  Transmission Date: 20200122
  Serious: Yes (Hospitalization, Other)
  Sender: FDA-Public Use
  Company Number: US-PFIZER INC-2017153678

PATIENT
  Age: 73 Year
  Sex: Female

DRUGS (7)
  1. TRAMADOL. [Concomitant]
     Active Substance: TRAMADOL
     Indication: PAIN
     Dosage: 50 MG, 2X/DAY
  2. LISINOPRIL. [Concomitant]
     Active Substance: LISINOPRIL
     Dosage: 20 MG, 1X/DAY
  3. ESCITALOPRAM [Concomitant]
     Active Substance: ESCITALOPRAM OXALATE
     Dosage: 20 MG, 1X/DAY
  4. MEMANTINE. [Concomitant]
     Active Substance: MEMANTINE
     Dosage: 10 MG, 1X/DAY
  5. FLECTOR [Suspect]
     Active Substance: DICLOFENAC EPOLAMINE
     Indication: PAIN
  6. FLECTOR [Suspect]
     Active Substance: DICLOFENAC EPOLAMINE
     Indication: ARTHROPATHY
     Dosage: 1 DF, 2X/DAY
     Route: 062
  7. LUMIGAN [Concomitant]
     Active Substance: BIMATOPROST
     Dosage: 0.01 %, 1X/DAY

REACTIONS (11)
  - Off label use [Unknown]
  - Pain [Unknown]
  - General physical health deterioration [Unknown]
  - Compression fracture [Unknown]
  - Intentional product misuse [Unknown]
  - Upper limb fracture [Unknown]
  - Dementia [Unknown]
  - Fall [Unknown]
  - Spinal fracture [Unknown]
  - Drug ineffective [Unknown]
  - Product use in unapproved indication [Unknown]
